FAERS Safety Report 21151335 (Version 1)
Quarter: 2022Q3

REPORT INFORMATION
  Report Type: Spontaneous
  Country: GB (occurrence: GB)
  Receive Date: 20220730
  Receipt Date: 20220730
  Transmission Date: 20221026
  Serious: Yes (Other)
  Sender: FDA-Public Use
  Company Number: None

PATIENT
  Sex: Female

DRUGS (1)
  1. PROLIA [Suspect]
     Active Substance: DENOSUMAB
     Indication: Product used for unknown indication
     Dosage: 2 MILLIGRAM
     Route: 065
     Dates: start: 20210920

REACTIONS (20)
  - Chest discomfort [Unknown]
  - Emphysema [Unknown]
  - Ear pain [Unknown]
  - Tinnitus [Unknown]
  - Burning sensation [Unknown]
  - Feeling abnormal [Unknown]
  - Throat tightness [Unknown]
  - Night sweats [Unknown]
  - Chest pain [Unknown]
  - Lower respiratory tract infection [Unknown]
  - Dyspnoea [Unknown]
  - Neck pain [Unknown]
  - Sinusitis [Unknown]
  - Muscle spasms [Unknown]
  - Back pain [Unknown]
  - Arthralgia [Unknown]
  - Fatigue [Unknown]
  - Rash [Unknown]
  - Pain in extremity [Unknown]
  - Pain in extremity [Unknown]
